FAERS Safety Report 5903928-6 (Version None)
Quarter: 2008Q3

REPORT INFORMATION
  Report Type: 
  Country: None (occurrence: None)
  Receive Date: 20080919
  Receipt Date: 20080828
  Transmission Date: 20090109
  Serious: Yes (Other)
  Sender: FDA-Public Use
  Company Number: US-WYE-H05779008

PATIENT
  Age: 71 Year
  Sex: Female

DRUGS (5)
  1. PRISTIQ [Suspect]
     Indication: DEPRESSION
     Dosage: 50 MG 1X PER 1 DAY, ORAL
     Route: 048
     Dates: start: 20080601, end: 20080601
  2. TOPAMAX [Concomitant]
  3. ACETYLSALICYLIC ACID SRT [Concomitant]
  4. CRESTOR [Concomitant]
  5. SYNTHROID [Concomitant]

REACTIONS (2)
  - ANXIETY [None]
  - DIARRHOEA [None]
